FAERS Safety Report 25632133 (Version 1)
Quarter: 2025Q3

REPORT INFORMATION
  Report Type: Spontaneous
  Country: TW (occurrence: TW)
  Receive Date: 20250801
  Receipt Date: 20250801
  Transmission Date: 20251020
  Serious: Yes (Death)
  Sender: NOVARTIS
  Company Number: TW-002147023-NVSC2025TW121530

PATIENT
  Age: 23 Year
  Sex: Male

DRUGS (1)
  1. KYMRIAH [Suspect]
     Active Substance: TISAGENLECLEUCEL
     Indication: B-cell type acute leukaemia
     Route: 042
     Dates: start: 20250617, end: 20250617

REACTIONS (1)
  - Death [Fatal]

NARRATIVE: CASE EVENT DATE: 20250729
